FAERS Safety Report 14286162 (Version 1)
Quarter: 2017Q4

REPORT INFORMATION
  Report Type: Spontaneous
  Country: US (occurrence: US)
  Receive Date: 20171214
  Receipt Date: 20171214
  Transmission Date: 20180321
  Serious: No
  Sender: FDA-Public Use
  Company Number: US-PFIZER INC-2017530808

PATIENT
  Age: 56 Year
  Sex: Female
  Weight: 83.91 kg

DRUGS (3)
  1. PREMARIN [Suspect]
     Active Substance: ESTROGENS, CONJUGATED
     Indication: VAGINAL DISORDER
     Dosage: UNK, (4 GRAMS IN 48 HOURS)
     Route: 067
  2. PREMARIN [Suspect]
     Active Substance: ESTROGENS, CONJUGATED
     Indication: VULVOVAGINAL PAIN
  3. FLUOXETINE [Concomitant]
     Active Substance: FLUOXETINE HYDROCHLORIDE
     Indication: SERUM SEROTONIN DECREASED
     Dosage: 20MG CAPSULE BY MOUTH EVERY MORNING
     Route: 048

REACTIONS (3)
  - Discomfort [Not Recovered/Not Resolved]
  - Incorrect dose administered [Unknown]
  - Muscle spasms [Not Recovered/Not Resolved]
